FAERS Safety Report 11836725 (Version 1)
Quarter: 2015Q4

REPORT INFORMATION
  Report Type: Spontaneous
  Country: US (occurrence: None)
  Receive Date: 20151214
  Receipt Date: 20151214
  Transmission Date: 20160305
  Serious: Yes (Other)
  Sender: FDA-Public Use
  Company Number: FR-ALSI-201500310

PATIENT
  Sex: Female

DRUGS (2)
  1. OXYGENE MEDICINAL AIR LIQUIDE 200 BAR GAZ POUR INHALATION EN BOUTEILLE [Suspect]
     Active Substance: OXYGEN
     Indication: PRODUCT USED FOR UNKNOWN INDICATION
     Dosage: 7L  RESPIRATORY
     Route: 055
  2. OXYGEN. [Suspect]
     Active Substance: OXYGEN

REACTIONS (4)
  - Cyanosis [None]
  - Product quality issue [None]
  - Underdose [None]
  - Device alarm issue [None]

NARRATIVE: CASE EVENT DATE: 20151128
